FAERS Safety Report 12974205 (Version 3)
Quarter: 2017Q1

REPORT INFORMATION
  Report Type: Spontaneous
  Country: CA (occurrence: CA)
  Receive Date: 20161125
  Receipt Date: 20170314
  Transmission Date: 20170428
  Serious: Yes (Death, Hospitalization, Other)
  Sender: FDA-Public Use
  Company Number: CA-JNJFOC-20161118719

PATIENT

DRUGS (2)
  1. ACETAMINOPHEN. [Suspect]
     Active Substance: ACETAMINOPHEN
     Route: 065
  2. ACETAMINOPHEN. [Suspect]
     Active Substance: ACETAMINOPHEN
     Indication: PRODUCT USED FOR UNKNOWN INDICATION
     Route: 065

REACTIONS (12)
  - Multiple organ dysfunction syndrome [Fatal]
  - Gastrointestinal haemorrhage [Unknown]
  - Bacteraemia [Unknown]
  - Brain oedema [Fatal]
  - Seizure [Unknown]
  - Death [Fatal]
  - Computerised tomogram abnormal [Unknown]
  - Chest X-ray abnormal [Unknown]
  - Sepsis [Unknown]
  - Drug-induced liver injury [Fatal]
  - Arrhythmia [Unknown]
  - Nervous system disorder [Fatal]
